FAERS Safety Report 21234549 (Version 3)
Quarter: 2022Q4

REPORT INFORMATION
  Report Type: Report from Study
  Country: DE (occurrence: DE)
  Receive Date: 20220820
  Receipt Date: 20221129
  Transmission Date: 20230113
  Serious: Yes (Hospitalization)
  Sender: FDA-Public Use
  Company Number: DE-ABBVIE-22K-062-4484815-00

PATIENT
  Sex: Female

DRUGS (15)
  1. CARBIDOPA\LEVODOPA [Suspect]
     Active Substance: CARBIDOPA\LEVODOPA
     Indication: Parkinson^s disease
     Dosage: INITIAL TITRATION
     Route: 050
     Dates: start: 20220713, end: 202207
  2. CARBIDOPA\LEVODOPA [Suspect]
     Active Substance: CARBIDOPA\LEVODOPA
     Dosage: MD: 8.0ML; CRD: 1.8ML/H; ED: 1.0ML
     Route: 050
     Dates: start: 20220718, end: 2022
  3. XARELTO [Concomitant]
     Active Substance: RIVAROXABAN
     Indication: Product used for unknown indication
     Route: 048
  4. XARELTO [Concomitant]
     Active Substance: RIVAROXABAN
     Indication: Product used for unknown indication
  5. QUETIAPIN STADA [Concomitant]
     Indication: Product used for unknown indication
     Route: 048
  6. RIVOTRIL [Concomitant]
     Active Substance: CLONAZEPAM
     Indication: Product used for unknown indication
     Route: 048
  7. BENSERAZIDE HYDROCHLORIDE\LEVODOPA [Concomitant]
     Active Substance: BENSERAZIDE HYDROCHLORIDE\LEVODOPA
     Indication: Product used for unknown indication
     Dosage: 100MG LEVODOPA, 28.54MG BENSERAZID HYDROCLORID; SUSPENSION
     Route: 048
  8. Elontril (Bupropion hydrochloride retard) [Concomitant]
     Indication: Product used for unknown indication
     Route: 048
  9. CLOZAPINE [Concomitant]
     Active Substance: CLOZAPINE
     Indication: Product used for unknown indication
     Route: 048
  10. Dociton (Propranolol hydrocloride) [Concomitant]
     Indication: Product used for unknown indication
     Route: 048
  11. PANTOPRAZOLE SODIUM [Concomitant]
     Active Substance: PANTOPRAZOLE SODIUM
     Indication: Product used for unknown indication
     Route: 048
  12. CARBIMAZOLE [Concomitant]
     Active Substance: CARBIMAZOLE
     Indication: Product used for unknown indication
     Route: 048
     Dates: end: 2022
  13. CARBIMAZOLE [Concomitant]
     Active Substance: CARBIMAZOLE
     Indication: Product used for unknown indication
     Route: 048
     Dates: start: 2022
  14. BENSERAZIDE HYDROCHLORIDE\LEVODOPA [Concomitant]
     Active Substance: BENSERAZIDE HYDROCHLORIDE\LEVODOPA
     Indication: Product used for unknown indication
     Dosage: 100/25MG
  15. BISO [Concomitant]
     Indication: Product used for unknown indication

REACTIONS (18)
  - Device mechanical issue [Not Recovered/Not Resolved]
  - On and off phenomenon [Unknown]
  - Peritonitis [Not Recovered/Not Resolved]
  - Mood disorder due to a general medical condition [Unknown]
  - Parkinsonism [Unknown]
  - Restless legs syndrome [Not Recovered/Not Resolved]
  - Device dislocation [Unknown]
  - Depression [Unknown]
  - Panic attack [Unknown]
  - Therapeutic product effect variable [Unknown]
  - Hypothyroidism [Unknown]
  - Dyskinesia [Unknown]
  - Reduced facial expression [Unknown]
  - Insomnia [Unknown]
  - Device breakage [Unknown]
  - Muscle rigidity [Unknown]
  - Tremor [Recovering/Resolving]
  - Hyperkinesia [Unknown]

NARRATIVE: CASE EVENT DATE: 20220101
